FAERS Safety Report 8889259 (Version 2)
Quarter: 2012Q4

REPORT INFORMATION
  Report Type: 
  Country: US (occurrence: US)
  Receive Date: 20121106
  Receipt Date: 20121129
  Transmission Date: 20130627
  Serious: Yes (Hospitalization, Other)
  Sender: FDA-Public Use
  Company Number: US-JNJFOC-20121017522

PATIENT
  Sex: Female

DRUGS (6)
  1. REMICADE [Suspect]
     Indication: CROHN^S DISEASE
     Route: 042
     Dates: start: 20120725
  2. REMICADE [Suspect]
     Indication: CROHN^S DISEASE
     Route: 042
     Dates: start: 201210
  3. REMICADE [Suspect]
     Indication: CROHN^S DISEASE
     Route: 042
  4. REMICADE [Suspect]
     Indication: RHEUMATIC DISORDER
     Route: 042
  5. REMICADE [Suspect]
     Indication: RHEUMATIC DISORDER
     Route: 042
     Dates: start: 20120725
  6. REMICADE [Suspect]
     Indication: RHEUMATIC DISORDER
     Route: 042
     Dates: start: 201210

REACTIONS (1)
  - Lupus-like syndrome [Not Recovered/Not Resolved]
